FAERS Safety Report 4790663-3 (Version None)
Quarter: 2005Q4

REPORT INFORMATION
  Report Type: 
  Country: None (occurrence: None)
  Receive Date: 20051006
  Receipt Date: 20050627
  Transmission Date: 20060501
  Serious: Yes (Hospitalization)
  Sender: FDA-Public Use
  Company Number: US-MERCK-0506USA03999

PATIENT
  Age: 40 Year
  Sex: Male
  Weight: 86 kg

DRUGS (9)
  1. VIOXX [Suspect]
     Indication: SHOULDER PAIN
     Route: 048
     Dates: start: 20011203, end: 20030601
  2. VIOXX [Suspect]
     Route: 048
     Dates: start: 20040412, end: 20040901
  3. VIOXX [Suspect]
     Indication: BACK PAIN
     Route: 048
     Dates: start: 20011203, end: 20030601
  4. VIOXX [Suspect]
     Route: 048
     Dates: start: 20040412, end: 20040901
  5. LIPITOR [Concomitant]
     Indication: BLOOD CHOLESTEROL INCREASED
     Route: 065
     Dates: start: 20010101
  6. TYLENOL (CAPLET) [Concomitant]
     Indication: ARTHRALGIA
     Route: 065
     Dates: start: 19880101
  7. TYLENOL (CAPLET) [Concomitant]
     Indication: BACK PAIN
     Route: 065
     Dates: start: 19880101
  8. ADVIL [Concomitant]
     Indication: ARTHRALGIA
     Route: 065
     Dates: start: 19900101, end: 20050101
  9. ADVIL [Concomitant]
     Indication: BACK PAIN
     Route: 065
     Dates: start: 19900101, end: 20050101

REACTIONS (2)
  - GALLBLADDER DISORDER [None]
  - MYOCARDIAL INFARCTION [None]
